FAERS Safety Report 9643342 (Version 2)
Quarter: 2013Q4

REPORT INFORMATION
  Report Type: Spontaneous
  Country: US (occurrence: None)
  Receive Date: 20131022
  Receipt Date: 20131105
  Transmission Date: 20140711
  Serious: Yes (Other)
  Sender: FDA-Public Use
  Company Number: 2013-US-001773

PATIENT
  Age: 57 Year
  Sex: Female

DRUGS (5)
  1. XYREM [Suspect]
     Indication: INSOMNIA
     Route: 048
     Dates: start: 20130929, end: 20130929
  2. XANAX (ALPRAZOLAM) [Concomitant]
  3. LITHIUM (LITHIUM ASPARTATE) [Concomitant]
  4. ABILIFY (ARIPIPRAZOLE) [Concomitant]
  5. PRISTIQ (DESVENLAFAXINE SUCCINATE) [Concomitant]

REACTIONS (4)
  - Head injury [None]
  - Fall [None]
  - Periorbital contusion [None]
  - Memory impairment [None]
